FAERS Safety Report 17237791 (Version 3)
Quarter: 2020Q1

REPORT INFORMATION
  Report Type: Spontaneous
  Country: US (occurrence: US)
  Receive Date: 20200106
  Receipt Date: 20200130
  Transmission Date: 20200409
  Serious: Yes (Death, Life-Threatening, Hospitalization, Other)
  Sender: FDA-Public Use
  Company Number: US-SA-2020SA001644

PATIENT
  Age: 16 Year
  Sex: Female

DRUGS (22)
  1. HYDROCORTISONE. [Suspect]
     Active Substance: HYDROCORTISONE
     Indication: ACUTE GRAFT VERSUS HOST DISEASE IN SKIN
     Dosage: 50 MG, 1X
     Route: 042
     Dates: start: 20170204, end: 20170204
  2. METHYLPREDNISOLONE. [Suspect]
     Active Substance: METHYLPREDNISOLONE
     Dosage: 20 MG
     Dates: start: 20170125, end: 2017
  3. SIROLIMUS. [Suspect]
     Active Substance: SIROLIMUS
     Indication: ACUTE GRAFT VERSUS HOST DISEASE IN SKIN
     Dosage: 2 MG, QD
     Route: 048
     Dates: start: 2016, end: 20170114
  4. RITUXIMAB. [Suspect]
     Active Substance: RITUXIMAB
     Indication: EPSTEIN-BARR VIRUS INFECTION
     Dosage: 1 DF, 1X
     Dates: start: 20160525, end: 20160525
  5. TACROLIMUS. [Suspect]
     Active Substance: TACROLIMUS
     Indication: ACUTE GRAFT VERSUS HOST DISEASE IN SKIN
     Dosage: UNK
     Dates: start: 2016, end: 20170114
  6. METHOTREXATE. [Suspect]
     Active Substance: METHOTREXATE
     Indication: ACUTE GRAFT VERSUS HOST DISEASE IN SKIN
     Dosage: 15 MG, 1X
     Route: 037
     Dates: start: 20170127, end: 20170127
  7. METHOTREXATE. [Suspect]
     Active Substance: METHOTREXATE
     Indication: HAEMOPHAGOCYTIC LYMPHOHISTIOCYTOSIS
     Dosage: 15 MG, 1X
     Route: 037
     Dates: start: 20170203, end: 20170203
  8. PREDNISONE. [Suspect]
     Active Substance: PREDNISONE
     Dosage: 10 MG, QD
     Route: 048
     Dates: start: 20170112, end: 20170114
  9. METHYLPREDNISOLONE. [Suspect]
     Active Substance: METHYLPREDNISOLONE
     Indication: HAEMOPHAGOCYTIC LYMPHOHISTIOCYTOSIS
     Dosage: 60 MG
     Dates: start: 20170116, end: 20170116
  10. METHYLPREDNISOLONE. [Suspect]
     Active Substance: METHYLPREDNISOLONE
     Dosage: 45 MG
     Dates: start: 20170117, end: 20170117
  11. METHYLPREDNISOLONE. [Suspect]
     Active Substance: METHYLPREDNISOLONE
     Dosage: 40 MG
     Dates: start: 20170118, end: 20170118
  12. MYCOPHENOLATE MOFETIL. [Suspect]
     Active Substance: MYCOPHENOLATE MOFETIL
     Indication: HAEMOPHAGOCYTIC LYMPHOHISTIOCYTOSIS
     Dosage: UNK
     Dates: start: 2016, end: 2017
  13. METHYLPREDNISOLONE. [Suspect]
     Active Substance: METHYLPREDNISOLONE
     Indication: ACUTE GRAFT VERSUS HOST DISEASE IN SKIN
     Dosage: 100 MG
     Route: 042
     Dates: start: 20170115, end: 20170115
  14. METHYLPREDNISOLONE. [Suspect]
     Active Substance: METHYLPREDNISOLONE
     Dosage: 60 MG
     Dates: start: 20170119, end: 20170122
  15. METHYLPREDNISOLONE. [Suspect]
     Active Substance: METHYLPREDNISOLONE
     Dosage: 40 MG
     Dates: start: 20170122, end: 20170124
  16. HYDROCORTISONE. [Suspect]
     Active Substance: HYDROCORTISONE
     Indication: HAEMOPHAGOCYTIC LYMPHOHISTIOCYTOSIS
     Dosage: 50 MG, Q8H
     Dates: start: 20170205, end: 20170207
  17. DEXAMETHASONE SALT NOT SPECIFIED [Suspect]
     Active Substance: DEXAMETHASONE
     Indication: ACUTE GRAFT VERSUS HOST DISEASE IN SKIN
     Dosage: 15 MG, QD
     Route: 042
     Dates: start: 20170125, end: 20170131
  18. DEXAMETHASONE SALT NOT SPECIFIED [Suspect]
     Active Substance: DEXAMETHASONE
     Indication: HAEMOPHAGOCYTIC LYMPHOHISTIOCYTOSIS
     Dosage: 8 MG, BID
     Dates: start: 20170201, end: 20170202
  19. RUXOLITINIB [Suspect]
     Active Substance: RUXOLITINIB
     Indication: ACUTE GRAFT VERSUS HOST DISEASE IN SKIN
     Dosage: 10 MG, Q12H
     Route: 048
     Dates: start: 201611, end: 20170114
  20. ETOPOSIDE. [Suspect]
     Active Substance: ETOPOSIDE
     Indication: HAEMOPHAGOCYTIC LYMPHOHISTIOCYTOSIS
     Dosage: UNK
     Dates: start: 2017, end: 2017
  21. PREDNISONE. [Suspect]
     Active Substance: PREDNISONE
     Indication: ACUTE GRAFT VERSUS HOST DISEASE IN SKIN
     Dosage: UNK
     Route: 048
     Dates: start: 2016, end: 2017
  22. MYCOPHENOLATE MOFETIL. [Suspect]
     Active Substance: MYCOPHENOLATE MOFETIL
     Indication: ACUTE GRAFT VERSUS HOST DISEASE IN SKIN

REACTIONS (3)
  - Respiratory syncytial virus infection [Unknown]
  - Encephalopathy [Fatal]
  - JC virus infection [Fatal]

NARRATIVE: CASE EVENT DATE: 2016
